FAERS Safety Report 6613514-0 (Version None)
Quarter: 2010Q1

REPORT INFORMATION
  Report Type: 
  Country: None (occurrence: None)
  Receive Date: 20100225
  Receipt Date: 20100210
  Transmission Date: 20100710
  Serious: Yes (Hospitalization)
  Sender: FDA-Public Use
  Company Number: JP-001527

PATIENT
  Age: 30 Year
  Sex: Female

DRUGS (3)
  1. MENOTROPHIN (HMG) [Suspect]
     Indication: OVULATION INDUCTION
     Dosage: (150 IU)
     Route: 015
  2. CLOMIPHENE /00061301/ (CLOMIPHENE CITRATE) [Suspect]
     Indication: OVULATION INDUCTION
  3. PREDNISOLONE [Suspect]
     Indication: OVULATION INDUCTION

REACTIONS (4)
  - ABORTION INCOMPLETE [None]
  - DYSPNOEA [None]
  - ECTOPIC PREGNANCY [None]
  - OVARIAN HYPERSTIMULATION SYNDROME [None]
